FAERS Safety Report 24827652 (Version 1)
Quarter: 2025Q1

REPORT INFORMATION
  Report Type: Report from Study
  Country: KR (occurrence: KR)
  Receive Date: 20250109
  Receipt Date: 20250109
  Transmission Date: 20250408
  Serious: Yes (Other)
  Sender: JAZZ
  Company Number: KR-BR-LTD-OS-401-007-001

PATIENT
  Age: 72 Year
  Sex: Male
  Weight: 68.1 kg

DRUGS (77)
  1. LURBINECTEDIN [Suspect]
     Active Substance: LURBINECTEDIN
     Indication: Small cell lung cancer
     Dosage: 2.23 MILLIGRAM/SQ. METER, Q3W
     Route: 042
     Dates: start: 20230713, end: 20230713
  2. Leucostim injection prefilled syringe (Filgrastim(recombinant)) [Concomitant]
     Indication: Prophylaxis
     Dosage: 300 MICROGRAM, QD
     Route: 058
     Dates: start: 20230720, end: 20230721
  3. Leucostim injection prefilled syringe (Filgrastim(recombinant)) [Concomitant]
     Route: 058
     Dates: start: 20230804, end: 20230804
  4. Leucostim injection prefilled syringe (Filgrastim(recombinant)) [Concomitant]
     Route: 058
     Dates: start: 20230825, end: 20230825
  5. Leucostim injection prefilled syringe (Filgrastim(recombinant)) [Concomitant]
     Dosage: 300 MICROGRAM, QD
     Route: 058
     Dates: start: 20230720, end: 20230721
  6. YUHAN DEXAMETHASONE DISODIUM PHOSPHATE [Concomitant]
     Indication: Prophylaxis
     Dosage: 5 MILLIGRAM, QD
     Route: 042
     Dates: start: 20230803, end: 20230803
  7. YUHAN DEXAMETHASONE DISODIUM PHOSPHATE [Concomitant]
     Dosage: 8 MILLIGRAM, QD
     Route: 042
     Dates: start: 20230824, end: 20230824
  8. RAMOSETRON HYDROCHLORIDE [Concomitant]
     Active Substance: RAMOSETRON HYDROCHLORIDE
     Indication: Prophylaxis
     Dosage: 0.1 MILLIGRAM, QD
     Route: 048
     Dates: start: 20230803, end: 20240805
  9. RAMOSETRON HYDROCHLORIDE [Concomitant]
     Active Substance: RAMOSETRON HYDROCHLORIDE
     Dosage: 0.1 MILLIGRAM, QD
     Route: 048
     Dates: start: 20230824, end: 20230826
  10. ALGIN [SODIUM ALGINATE] [Concomitant]
     Indication: Prophylaxis
     Dosage: 20 MILLILITER, TID
     Route: 048
     Dates: start: 20230906, end: 20231003
  11. ALGIN [SODIUM ALGINATE] [Concomitant]
     Dosage: 20 MILLILITER, TID
     Route: 048
     Dates: start: 20230906, end: 20231003
  12. K CAB [Concomitant]
     Indication: Prophylaxis
     Dosage: 50 MILLIGRAM, QD
     Route: 048
     Dates: start: 20230906, end: 20231003
  13. K CAB [Concomitant]
     Dosage: 50 MILLIGRAM, QD
     Route: 048
     Dates: start: 20230906, end: 20231003
  14. COUGH SYRUP [AMMONIUM CHLORIDE;CHLORPHENAMINE MALEATE;DIHYDROCODEINE B [Concomitant]
     Indication: Small cell lung cancer
     Dosage: 20 MILLILITER, TID
     Route: 048
     Dates: start: 20230627
  15. COUGH SYRUP [AMMONIUM CHLORIDE;CHLORPHENAMINE MALEATE;DIHYDROCODEINE B [Concomitant]
     Dosage: 20 MILLILITER, TID
     Route: 048
     Dates: start: 20230627
  16. TAZOPERAN [Concomitant]
     Route: 042
     Dates: start: 20230907, end: 20230915
  17. LIVIDI [Concomitant]
     Route: 048
     Dates: start: 20230907
  18. LIVIDI [Concomitant]
     Dosage: 1 DOSAGE FORM, TID
     Route: 048
     Dates: start: 20230908, end: 20230915
  19. URSODIOL [Concomitant]
     Active Substance: URSODIOL
     Dosage: 200 MILLIGRAM, QD
     Route: 048
     Dates: start: 20230907, end: 20230915
  20. URSODIOL [Concomitant]
     Active Substance: URSODIOL
     Dosage: 200 MILLIGRAM, QD
     Route: 048
     Dates: start: 20230908
  21. URSODIOL [Concomitant]
     Active Substance: URSODIOL
     Dosage: 200 MILLIGRAM, TID
     Route: 048
     Dates: start: 20230921, end: 20231027
  22. URSODIOL [Concomitant]
     Active Substance: URSODIOL
     Dosage: 200 MILLIGRAM, QD
     Route: 048
     Dates: start: 20230907, end: 20230915
  23. URSODIOL [Concomitant]
     Active Substance: URSODIOL
     Dosage: 200 MILLIGRAM, QD
     Route: 048
     Dates: start: 20230908
  24. URSODIOL [Concomitant]
     Active Substance: URSODIOL
     Dosage: 200 MILLIGRAM, TID
     Route: 048
     Dates: start: 20230921, end: 20231027
  25. PROFA [Concomitant]
     Dosage: 1 GRAM, QD
     Route: 048
     Dates: start: 20230907
  26. HEPA MERZ [ORNITHINE ASPARTATE] [Concomitant]
     Dosage: 20 GRAM, QD
     Route: 042
     Dates: start: 20230907, end: 20230910
  27. HEPA MERZ [ORNITHINE ASPARTATE] [Concomitant]
     Dosage: 4000 MILLIGRAM, QD
     Route: 042
     Dates: start: 20230911, end: 20230914
  28. HEPA MERZ [ORNITHINE ASPARTATE] [Concomitant]
     Dosage: 20 GRAM, QD
     Route: 042
     Dates: start: 20230907, end: 20230910
  29. HEPA MERZ [ORNITHINE ASPARTATE] [Concomitant]
     Dosage: 4000 MILLIGRAM, QD
     Route: 042
     Dates: start: 20230911, end: 20230914
  30. BISOPROLOL FUMARATE [Concomitant]
     Active Substance: BISOPROLOL FUMARATE
     Dosage: 2.5 MILLIGRAM, QD
     Route: 048
     Dates: start: 20231124, end: 20231130
  31. NORVASC [Concomitant]
     Active Substance: AMLODIPINE BESYLATE
     Indication: Hypertension
     Dosage: 5 MILLIGRAM, QD
     Route: 048
     Dates: start: 20240908, end: 20240915
  32. CHOONGWAE NS [Concomitant]
     Dosage: 5 MILLIGRAM, BID
     Route: 048
     Dates: start: 20231124, end: 20231130
  33. PLAVIX [Concomitant]
     Active Substance: CLOPIDOGREL BISULFATE
     Indication: Coronary artery disease
     Dosage: 75 MILLIGRAM, QD
     Route: 048
     Dates: start: 20240908, end: 20240915
  34. PLAVIX [Concomitant]
     Active Substance: CLOPIDOGREL BISULFATE
     Dosage: 75 MILLIGRAM, QD
     Route: 048
     Dates: start: 20231124, end: 20231130
  35. TASNA [Concomitant]
     Indication: Gastrooesophageal reflux disease
     Dosage: 100 MILLIGRAM, TID
     Route: 048
     Dates: start: 20230908, end: 20230909
  36. TASNA [Concomitant]
     Dosage: 500 MILLIGRAM, TID
     Route: 048
     Dates: start: 20230914, end: 20230920
  37. TASNA [Concomitant]
     Dosage: 500 MILLIGRAM, TID
     Route: 048
     Dates: start: 20231124, end: 20231130
  38. TASNA [Concomitant]
     Dosage: 100 MILLIGRAM, TID
     Route: 048
     Dates: start: 20230908, end: 20230909
  39. TASNA [Concomitant]
     Dosage: 500 MILLIGRAM, TID
     Route: 048
     Dates: start: 20230914, end: 20230920
  40. TASNA [Concomitant]
     Dosage: 500 MILLIGRAM, TID
     Route: 048
     Dates: start: 20231124, end: 20231130
  41. GLICLAZIDE [Concomitant]
     Active Substance: GLICLAZIDE
     Indication: Diabetes mellitus
     Dosage: 60 MILLIGRAM, QD
     Route: 048
     Dates: start: 20231124, end: 20231130
  42. GLICLAZIDE [Concomitant]
     Active Substance: GLICLAZIDE
     Dosage: 60 MILLIGRAM, QD
     Route: 048
     Dates: start: 20231124, end: 20231130
  43. DAPAGLIFLOZIN [Concomitant]
     Active Substance: DAPAGLIFLOZIN
     Indication: Diabetes mellitus
     Dosage: 10 MILLIGRAM, QD
     Route: 048
     Dates: start: 20230908, end: 20230915
  44. DAPAGLIFLOZIN [Concomitant]
     Active Substance: DAPAGLIFLOZIN
     Dosage: 10 MILLIGRAM, QD
     Route: 048
     Dates: start: 20231124, end: 20231130
  45. DAPAGLIFLOZIN [Concomitant]
     Active Substance: DAPAGLIFLOZIN
     Dosage: 10 MILLIGRAM, QD
     Route: 048
     Dates: start: 20230908, end: 20230915
  46. DAPAGLIFLOZIN [Concomitant]
     Active Substance: DAPAGLIFLOZIN
     Dosage: 10 MILLIGRAM, QD
     Route: 048
     Dates: start: 20231124, end: 20231130
  47. METFORMIN HYDROCHLORIDE [Concomitant]
     Active Substance: METFORMIN HYDROCHLORIDE
     Indication: Diabetes mellitus
     Dosage: 1000 MILLIGRAM, QD
     Route: 048
     Dates: start: 20230908, end: 20230915
  48. METFORMIN HYDROCHLORIDE [Concomitant]
     Active Substance: METFORMIN HYDROCHLORIDE
     Dosage: 1000 MILLIGRAM, QD
     Route: 048
     Dates: start: 20231126, end: 20231130
  49. METFORMIN HYDROCHLORIDE [Concomitant]
     Active Substance: METFORMIN HYDROCHLORIDE
     Dosage: 1000 MILLIGRAM, QD
     Route: 048
     Dates: start: 20230908, end: 20230915
  50. METFORMIN HYDROCHLORIDE [Concomitant]
     Active Substance: METFORMIN HYDROCHLORIDE
     Dosage: 1000 MILLIGRAM, QD
     Route: 048
     Dates: start: 20231126, end: 20231130
  51. HUMALOG [Concomitant]
     Active Substance: INSULIN LISPRO
     Indication: Diabetes mellitus
     Dosage: 4 DOSAGE FORM, QD
     Route: 058
     Dates: start: 20230908, end: 20230909
  52. HUMALOG [Concomitant]
     Active Substance: INSULIN LISPRO
     Dosage: 4 DOSAGE FORM, QD
     Route: 058
     Dates: start: 20230911
  53. HUMALOG [Concomitant]
     Active Substance: INSULIN LISPRO
     Dosage: 4 DOSAGE FORM, QD
     Route: 058
     Dates: start: 20231123
  54. BETHANECHOL CHLORIDE [Concomitant]
     Active Substance: BETHANECHOL CHLORIDE
     Indication: Benign prostatic hyperplasia
     Dosage: 25 MILLIGRAM, BID
     Route: 048
     Dates: start: 20230908, end: 20230915
  55. AVODART [Concomitant]
     Active Substance: DUTASTERIDE
     Indication: Benign prostatic hyperplasia
     Dosage: 5 MILLIGRAM, QD
     Route: 048
  56. THRUPASS ODT [Concomitant]
     Indication: Benign prostatic hyperplasia
     Dosage: 8 MILLIGRAM, QD
     Route: 048
  57. YUHAN DEXAMETHASONE DISODIUM PHOSPHATE [Concomitant]
     Dosage: 8 MILLIGRAM, QD
     Route: 042
     Dates: start: 20231006
  58. YUHAN DEXAMETHASONE DISODIUM PHOSPHATE [Concomitant]
     Dosage: 8 MILLIGRAM, QD
     Route: 042
     Dates: start: 20231026
  59. YUHAN DEXAMETHASONE DISODIUM PHOSPHATE [Concomitant]
     Dosage: 8 MILLIGRAM, QD
     Route: 042
     Dates: start: 20231116
  60. YUHAN DEXAMETHASONE DISODIUM PHOSPHATE [Concomitant]
     Dosage: 8 MILLIGRAM, QD
     Route: 042
     Dates: start: 20231207
  61. RAMOSETRON HYDROCHLORIDE [Concomitant]
     Active Substance: RAMOSETRON HYDROCHLORIDE
     Dosage: 0.1 MILLIGRAM, QD
     Route: 048
     Dates: start: 20231026, end: 20231104
  62. RAMOSETRON HYDROCHLORIDE [Concomitant]
     Active Substance: RAMOSETRON HYDROCHLORIDE
     Dosage: 0.1 MILLIGRAM, QD
     Route: 048
     Dates: start: 20231116, end: 20231125
  63. RAMOSETRON HYDROCHLORIDE [Concomitant]
     Active Substance: RAMOSETRON HYDROCHLORIDE
     Dosage: 0.1 MILLIGRAM, QD
     Route: 048
     Dates: start: 20231207, end: 20231216
  64. CALCIUM POLYCARBOPHIL [Concomitant]
     Active Substance: CALCIUM POLYCARBOPHIL
     Dosage: 1250 MILLIGRAM, QD
     Route: 042
     Dates: start: 20231127
  65. CALCIUM POLYCARBOPHIL [Concomitant]
     Active Substance: CALCIUM POLYCARBOPHIL
     Dosage: 250 MILLIGRAM, BID
     Route: 048
     Dates: start: 20231128, end: 20231206
  66. CALCIUM POLYCARBOPHIL [Concomitant]
     Active Substance: CALCIUM POLYCARBOPHIL
     Dosage: 1250 MILLIGRAM, QD
     Route: 042
     Dates: start: 20231127
  67. CALCIUM POLYCARBOPHIL [Concomitant]
     Active Substance: CALCIUM POLYCARBOPHIL
     Dosage: 250 MILLIGRAM, BID
     Route: 048
     Dates: start: 20231128, end: 20231206
  68. XANAX [Concomitant]
     Active Substance: ALPRAZOLAM
     Dosage: 0.25 MILLIGRAM, QD
     Route: 048
     Dates: start: 20231127, end: 20231130
  69. LEVO [LEVOFLOXACIN] [Concomitant]
     Dosage: 750 MILLIGRAM, QD
     Route: 048
     Dates: start: 20231202, end: 20231208
  70. LEVO [LEVOFLOXACIN] [Concomitant]
     Dosage: 750 MILLIGRAM, QD
     Route: 048
     Dates: start: 20231202, end: 20231208
  71. DULACKHAN EASY [Concomitant]
     Dosage: 15 MILLIGRAM, BID
     Route: 048
     Dates: start: 20231127
  72. DULACKHAN EASY [Concomitant]
     Dosage: 15 MILLIGRAM, TID
     Route: 048
     Dates: start: 20231128, end: 20231206
  73. CITOPCIN [CIPROFLOXACIN HYDROCHLORIDE] [Concomitant]
     Dosage: 500 MILLIGRAM, QD
     Route: 048
     Dates: start: 20231129, end: 20231206
  74. CITOPCIN [CIPROFLOXACIN HYDROCHLORIDE] [Concomitant]
     Dosage: 500 MILLIGRAM, QD
     Route: 048
     Dates: start: 20231129, end: 20231206
  75. GODEX [ADENINE HYDROCHLORIDE;CARNITINE OROTATE;CYANOCOBALAMIN;LIVER;PY [Concomitant]
     Dosage: 2 DOSAGE FORM, BID
     Route: 048
     Dates: start: 20230921, end: 20231005
  76. BANAN [Concomitant]
     Active Substance: CEFPODOXIME PROXETIL
     Indication: Prophylaxis
     Dosage: 200 MILLIGRAM, QD
     Route: 048
     Dates: start: 20231129, end: 20231206
  77. BANAN [Concomitant]
     Active Substance: CEFPODOXIME PROXETIL
     Dosage: 200 MILLIGRAM, QD
     Route: 048
     Dates: start: 20231129, end: 20231206

REACTIONS (7)
  - Neutropenia [Recovered/Resolved]
  - Neutropenia [Recovered/Resolved]
  - Neutropenia [Recovered/Resolved]
  - Dizziness [Recovered/Resolved]
  - Nausea [Recovered/Resolved]
  - Vomiting [Recovered/Resolved]
  - Blood creatine phosphokinase increased [Recovered/Resolved]

NARRATIVE: CASE EVENT DATE: 20230907
